FAERS Safety Report 4483929-8 (Version None)
Quarter: 2004Q4

REPORT INFORMATION
  Report Type: 
  Country: None (occurrence: None)
  Receive Date: 20041025
  Receipt Date: 20040915
  Transmission Date: 20050328
  Serious: Yes (Death, Hospitalization)
  Sender: FDA-Public Use
  Company Number: PHBS2004JP12242

PATIENT
  Age: 54 Year
  Sex: Female
  Weight: 66 kg

DRUGS (11)
  1. NEORAL [Suspect]
     Indication: STEM CELL TRANSPLANT
     Dosage: 200 MG/D
     Route: 048
     Dates: start: 20031114, end: 20040126
  2. METHOTREXATE [Concomitant]
     Dosage: 2.5 MG/D
     Route: 042
     Dates: start: 20031023, end: 20031102
  3. PREDONINE [Suspect]
     Indication: HEPATITIS C
     Dosage: 120 MG/D
     Route: 048
     Dates: start: 20040120, end: 20040126
  4. ADVAFERON [Suspect]
     Indication: HEPATITIS C
     Dosage: 900-1800 IU
     Route: 058
     Dates: start: 20031223, end: 20031231
  5. FLUDARABINE PHOSPHATE [Concomitant]
     Dosage: 40 MG/D
     Route: 042
     Dates: start: 20031015, end: 20031019
  6. ALKERAN [Concomitant]
     Dosage: 110 MG/D
     Route: 042
     Dates: start: 20031018, end: 20031019
  7. SANDIMMUNE [Suspect]
     Indication: STEM CELL TRANSPLANT
     Dosage: 150 MG/D
     Route: 042
     Dates: start: 20031020, end: 20031113
  8. NEUTROGIN [Concomitant]
     Dosage: 350 UG/D
     Route: 042
     Dates: start: 20031026, end: 20031103
  9. MAXIPIME [Concomitant]
     Indication: PYREXIA
     Dosage: 2 G/D
     Route: 042
     Dates: start: 20031027, end: 20031103
  10. SOLU-MEDROL [Concomitant]
     Dosage: 100-1000 MG/D
     Route: 042
     Dates: start: 20031226, end: 20040119
  11. BUSULFAN [Concomitant]
     Dates: start: 20031015

REACTIONS (24)
  - ADULT T-CELL LYMPHOMA/LEUKAEMIA RECURRENT [None]
  - ALANINE AMINOTRANSFERASE INCREASED [None]
  - ASPARTATE AMINOTRANSFERASE INCREASED [None]
  - BLOOD ALKALINE PHOSPHATASE INCREASED [None]
  - BLOOD BILIRUBIN INCREASED [None]
  - BLOOD CHOLINESTERASE INCREASED [None]
  - CONDITION AGGRAVATED [None]
  - CYTOMEGALOVIRUS ANTIGEN POSITIVE [None]
  - DRUG EFFECT DECREASED [None]
  - GAMMA-GLUTAMYLTRANSFERASE INCREASED [None]
  - GRAFT VERSUS HOST DISEASE [None]
  - HEPAPLASTIN DECREASED [None]
  - HEPATIC FUNCTION ABNORMAL [None]
  - HEPATITIS C [None]
  - HEPATITIS C ANTIBODY POSITIVE [None]
  - HEPATITIS C RNA POSITIVE [None]
  - HEPATITIS FULMINANT [None]
  - METABOLIC ACIDOSIS [None]
  - NEUTROPENIA [None]
  - PANCYTOPENIA [None]
  - POST PROCEDURAL COMPLICATION [None]
  - PYREXIA [None]
  - SEPSIS [None]
  - STEM CELL TRANSPLANT [None]
